FAERS Safety Report 10840888 (Version 1)
Quarter: 2015Q1

REPORT INFORMATION
  Report Type: Report from Study
  Country: US (occurrence: US)
  Receive Date: 20150220
  Receipt Date: 20150220
  Transmission Date: 20150721
  Serious: No
  Sender: FDA-Public Use
  Company Number: US-ABBVIE-14P-163-1250904-00

PATIENT
  Age: 44 Year
  Sex: Female
  Weight: 63.56 kg

DRUGS (10)
  1. GABAPENTIN. [Concomitant]
     Active Substance: GABAPENTIN
     Indication: ARTHRITIS
  2. HUMIRA [Suspect]
     Active Substance: ADALIMUMAB
  3. DOXEPIN [Concomitant]
     Active Substance: DOXEPIN
     Indication: CROHN^S DISEASE
  4. METHYLCARBINOL [Concomitant]
     Indication: HEADACHE
  5. HYDROCODONE [Concomitant]
     Active Substance: HYDROCODONE
     Indication: CROHN^S DISEASE
  6. DICYCLOMINE [Concomitant]
     Active Substance: DICYCLOMINE HYDROCHLORIDE
     Indication: CROHN^S DISEASE
  7. RANITIDINE [Concomitant]
     Active Substance: RANITIDINE\RANITIDINE HYDROCHLORIDE
     Indication: GASTROOESOPHAGEAL REFLUX DISEASE
  8. HUMIRA [Suspect]
     Active Substance: ADALIMUMAB
     Indication: CROHN^S DISEASE
     Dates: start: 20140620, end: 20140620
  9. PROCHLORPERAZINE. [Concomitant]
     Active Substance: PROCHLORPERAZINE
     Indication: CROHN^S DISEASE
  10. MELOXICAM. [Concomitant]
     Active Substance: MELOXICAM
     Indication: ARTHRITIS

REACTIONS (1)
  - Injection site pain [Recovered/Resolved]

NARRATIVE: CASE EVENT DATE: 20140620
